FAERS Safety Report 23720049 (Version 1)
Quarter: 2024Q2

REPORT INFORMATION
  Report Type: Spontaneous
  Country: FR (occurrence: FR)
  Receive Date: 20240408
  Receipt Date: 20240408
  Transmission Date: 20240716
  Serious: Yes (Hospitalization)
  Sender: FDA-Public Use
  Company Number: None

PATIENT
  Age: 58 Year
  Sex: Male
  Weight: 85 kg

DRUGS (7)
  1. TOCILIZUMAB [Suspect]
     Active Substance: TOCILIZUMAB
     Indication: Rheumatoid arthritis
     Route: 065
     Dates: start: 20240205, end: 20240305
  2. LANSOPRAZOLE [Concomitant]
     Active Substance: LANSOPRAZOLE
  3. ATORVASTATIN [Concomitant]
     Active Substance: ATORVASTATIN
  4. HUMALOG [Concomitant]
     Active Substance: INSULIN LISPRO
  5. LEVEMIR [Concomitant]
     Active Substance: INSULIN DETEMIR
  6. PREDNISONE [Concomitant]
     Active Substance: PREDNISONE
  7. APIXABAN [Concomitant]
     Active Substance: APIXABAN

REACTIONS (1)
  - Arthralgia [Recovering/Resolving]

NARRATIVE: CASE EVENT DATE: 20240307
